FAERS Safety Report 18505582 (Version 2)
Quarter: 2020Q4

REPORT INFORMATION
  Report Type: Report from Study
  Country: PT (occurrence: PT)
  Receive Date: 20201116
  Receipt Date: 20201123
  Transmission Date: 20210114
  Serious: Yes (Other)
  Sender: FDA-Public Use
  Company Number: PT-ORION CORPORATION ORION PHARMA-20_00010611

PATIENT
  Age: 68 Year
  Sex: Male

DRUGS (8)
  1. STALEVO [Suspect]
     Active Substance: CARBIDOPA\ENTACAPONE\LEVODOPA
     Indication: ON AND OFF PHENOMENON
     Route: 065
  2. ONGENTYS [Suspect]
     Active Substance: OPICAPONE
     Indication: ON AND OFF PHENOMENON
     Route: 065
  3. ROTIGOTINE [Suspect]
     Active Substance: ROTIGOTINE
     Indication: ON AND OFF PHENOMENON
  4. ROTIGOTINE [Suspect]
     Active Substance: ROTIGOTINE
     Indication: OFF LABEL USE
     Route: 065
  5. REQUIP [Suspect]
     Active Substance: ROPINIROLE HYDROCHLORIDE
     Indication: ON AND OFF PHENOMENON
     Route: 065
  6. LEVODOPA [Concomitant]
     Active Substance: LEVODOPA
     Indication: ON AND OFF PHENOMENON
     Dosage: 400 (UNIT UNKNOWN)
     Route: 065
  7. SINEMET [Suspect]
     Active Substance: CARBIDOPA\LEVODOPA
     Indication: ON AND OFF PHENOMENON
     Dosage: LEVODOPA DOSAGE: 150 (UNITS NOT REPORTED)
     Route: 065
  8. AZILECT [Suspect]
     Active Substance: RASAGILINE MESYLATE
     Indication: ON AND OFF PHENOMENON
     Route: 065

REACTIONS (10)
  - Reduced facial expression [Unknown]
  - Anxiety [Unknown]
  - Sleep disorder [Unknown]
  - Dystonia [Unknown]
  - Therapeutic response shortened [Unknown]
  - Muscle rigidity [Unknown]
  - Gait disturbance [Unknown]
  - Depression [Unknown]
  - Fatigue [Unknown]
  - Confusional state [Unknown]
